FAERS Safety Report 8534784-8 (Version None)
Quarter: 2012Q3

REPORT INFORMATION
  Report Type: 
  Country: None (occurrence: None)
  Receive Date: 20120724
  Receipt Date: 20120716
  Transmission Date: 20120928
  Serious: Yes (Other)
  Sender: FDA-Public Use
  Company Number: IE-BAXTER-2012BAX006653

PATIENT
  Age: 78 Year
  Sex: Female

DRUGS (1)
  1. KIOVIG [Suspect]
     Route: 042
     Dates: start: 20120420, end: 20120420

REACTIONS (4)
  - HEART RATE INCREASED [None]
  - BODY TEMPERATURE INCREASED [None]
  - CHILLS [None]
  - BLOOD PRESSURE INCREASED [None]
